FAERS Safety Report 10361766 (Version 17)
Quarter: 2021Q2

REPORT INFORMATION
  Report Type: Other
  Country: CA (occurrence: CA)
  Receive Date: 20140805
  Receipt Date: 20210624
  Transmission Date: 20210716
  Serious: Yes (Hospitalization, Other)
  Sender: FDA-Public Use
  Company Number: CA-ROCHE-1139244

PATIENT
  Age: 57 Year
  Sex: Male
  Weight: 49 kg

DRUGS (18)
  1. ACTEMRA [Suspect]
     Active Substance: TOCILIZUMAB
     Route: 042
     Dates: start: 20130501, end: 20140827
  2. ACTEMRA [Suspect]
     Active Substance: TOCILIZUMAB
     Route: 042
     Dates: start: 20151214, end: 20161213
  3. ACTEMRA [Suspect]
     Active Substance: TOCILIZUMAB
     Dosage: 77 INFUSION
     Route: 042
     Dates: start: 20151214
  4. ACTEMRA [Suspect]
     Active Substance: TOCILIZUMAB
     Dosage: ONGOING
     Route: 042
     Dates: start: 20201104
  5. INDOCID [Concomitant]
     Active Substance: INDOMETHACIN
     Dosage: FOR 10 DAYS
  6. PREDNISONE. [Concomitant]
     Active Substance: PREDNISONE
  7. ACTEMRA [Suspect]
     Active Substance: TOCILIZUMAB
     Route: 042
     Dates: start: 20120316, end: 20120409
  8. PREDNISONE. [Concomitant]
     Active Substance: PREDNISONE
     Indication: PRODUCT USED FOR UNKNOWN INDICATION
  9. ACTEMRA [Suspect]
     Active Substance: TOCILIZUMAB
     Dosage: NO PIRS RECEIVED
     Route: 042
     Dates: start: 20170110
  10. ACTEMRA [Suspect]
     Active Substance: TOCILIZUMAB
     Route: 042
     Dates: start: 20201006
  11. INDOCID [Concomitant]
     Active Substance: INDOMETHACIN
     Indication: PRODUCT USED FOR UNKNOWN INDICATION
  12. ACTEMRA [Suspect]
     Active Substance: TOCILIZUMAB
     Route: 042
     Dates: start: 20171017
  13. ACTEMRA [Suspect]
     Active Substance: TOCILIZUMAB
     Route: 042
     Dates: start: 20120606, end: 20130401
  14. ACTEMRA [Suspect]
     Active Substance: TOCILIZUMAB
     Route: 042
     Dates: start: 20190715
  15. ACTEMRA [Suspect]
     Active Substance: TOCILIZUMAB
     Route: 042
     Dates: start: 20141022, end: 20151116
  16. ACTEMRA [Suspect]
     Active Substance: TOCILIZUMAB
     Route: 042
     Dates: start: 20141022, end: 20151116
  17. ACTEMRA [Suspect]
     Active Substance: TOCILIZUMAB
     Route: 042
     Dates: start: 20180716, end: 20201006
  18. ACTEMRA [Suspect]
     Active Substance: TOCILIZUMAB
     Indication: RHEUMATOID ARTHRITIS
     Route: 042
     Dates: start: 20110830, end: 20120217

REACTIONS (47)
  - Musculoskeletal disorder [Not Recovered/Not Resolved]
  - Hand fracture [Not Recovered/Not Resolved]
  - Blood pressure increased [Unknown]
  - Blood pressure fluctuation [Unknown]
  - Infusion related reaction [Unknown]
  - Paraesthesia [Not Recovered/Not Resolved]
  - Rheumatoid arthritis [Recovering/Resolving]
  - Arthralgia [Not Recovered/Not Resolved]
  - Nasopharyngitis [Recovered/Resolved]
  - Blood pressure increased [Unknown]
  - Transient ischaemic attack [Recovered/Resolved]
  - Fall [Unknown]
  - Gastric infection [Recovering/Resolving]
  - Off label use [Unknown]
  - Inguinal hernia [Not Recovered/Not Resolved]
  - Ill-defined disorder [Unknown]
  - Hypertension [Not Recovered/Not Resolved]
  - Peripheral swelling [Recovering/Resolving]
  - Asthenia [Unknown]
  - Weight increased [Unknown]
  - Disability assessment scale score increased [Recovering/Resolving]
  - Nausea [Recovering/Resolving]
  - Localised infection [Not Recovered/Not Resolved]
  - Malaise [Recovered/Resolved]
  - Influenza [Recovered/Resolved]
  - Blood pressure diastolic increased [Unknown]
  - Blood pressure diastolic abnormal [Unknown]
  - Diarrhoea [Recovering/Resolving]
  - Weight decreased [Not Recovered/Not Resolved]
  - Food poisoning [Unknown]
  - Oxygen saturation decreased [Unknown]
  - Rheumatoid arthritis [Not Recovered/Not Resolved]
  - Body temperature decreased [Unknown]
  - Hypoaesthesia [Not Recovered/Not Resolved]
  - Headache [Recovering/Resolving]
  - Abdominal pain upper [Unknown]
  - Vomiting [Recovering/Resolving]
  - Pain in extremity [Recovering/Resolving]
  - Pain [Not Recovered/Not Resolved]
  - Oxygen saturation decreased [Unknown]
  - Stress [Unknown]
  - Localised infection [Recovering/Resolving]
  - Decreased appetite [Unknown]
  - Ocular hyperaemia [Recovering/Resolving]
  - Blood pressure systolic increased [Unknown]
  - Rheumatoid nodule [Not Recovered/Not Resolved]
  - Heart rate decreased [Unknown]

NARRATIVE: CASE EVENT DATE: 201201
